FAERS Safety Report 9101575 (Version 1)
Quarter: 2013Q1

REPORT INFORMATION
  Report Type: Spontaneous
  Country: US (occurrence: US)
  Receive Date: 20130218
  Receipt Date: 20130218
  Transmission Date: 20140127
  Serious: No
  Sender: FDA-Public Use
  Company Number: US-ASTRAZENECA-2013SE09075

PATIENT
  Age: 47 Year
  Sex: Female
  Weight: 79.4 kg

DRUGS (5)
  1. ZOLADEX [Suspect]
     Indication: BREAST CANCER FEMALE
     Dosage: EVERY THREE MONTHS
     Route: 058
     Dates: start: 20130104
  2. ARIMIDEX [Suspect]
  3. INSULIN [Concomitant]
  4. LOSARTAN [Concomitant]
  5. VENLAFEXINE [Concomitant]

REACTIONS (2)
  - Device expulsion [Unknown]
  - Off label use [Unknown]
